FAERS Safety Report 13085376 (Version 3)
Quarter: 2018Q1

REPORT INFORMATION
  Report Type: Spontaneous
  Country: IT (occurrence: IT)
  Receive Date: 20170104
  Receipt Date: 20180222
  Transmission Date: 20180508
  Serious: Yes (Other)
  Sender: FDA-Public Use
  Company Number: IT-ELI_LILLY_AND_COMPANY-IT201612010428

PATIENT
  Sex: Male

DRUGS (4)
  1. 5-FLUOROURACIL                     /00098801/ [Suspect]
     Active Substance: FLUOROURACIL
     Indication: COLORECTAL CANCER METASTATIC
     Dosage: UNK UNK, UNKNOWN
     Route: 065
  2. ERBITUX [Suspect]
     Active Substance: CETUXIMAB
     Indication: COLORECTAL CANCER METASTATIC
     Dosage: UNK UNK, UNKNOWN
     Route: 065
  3. IRINOTECAN [Suspect]
     Active Substance: IRINOTECAN
     Indication: COLORECTAL CANCER METASTATIC
     Dosage: UNK UNK, UNKNOWN
     Route: 065
  4. FOLINIC ACID [Suspect]
     Active Substance: LEUCOVORIN
     Indication: COLORECTAL CANCER METASTATIC
     Dosage: ^UNK UNK, UNKNOWN
     Route: 065

REACTIONS (1)
  - Fistula [Unknown]
